FAERS Safety Report 5496492-X (Version None)
Quarter: 2007Q4

REPORT INFORMATION
  Report Type: 
  Country: None (occurrence: None)
  Receive Date: 20071025
  Receipt Date: 20070606
  Transmission Date: 20080405
  Serious: No
  Sender: FDA-Public Use
  Company Number: A0654395A

PATIENT
  Age: 87 Year
  Sex: Male

DRUGS (3)
  1. ADVAIR DISKUS 100/50 [Suspect]
     Indication: WHEEZING
     Dosage: 1PUFF TWICE PER DAY
     Route: 055
     Dates: start: 20070413, end: 20070421
  2. ATENOLOL [Concomitant]
  3. BLOOD PRESSURE MEDICATION [Concomitant]

REACTIONS (5)
  - COUGH [None]
  - DYSPNOEA [None]
  - INCREASED UPPER AIRWAY SECRETION [None]
  - RESPIRATORY TRACT IRRITATION [None]
  - SLEEP DISORDER [None]
